FAERS Safety Report 25181601 (Version 1)
Quarter: 2025Q2

REPORT INFORMATION
  Report Type: Spontaneous
  Country: BR (occurrence: BR)
  Receive Date: 20250410
  Receipt Date: 20250410
  Transmission Date: 20250717
  Serious: Yes (Other)
  Sender: Phathom Pharmaceuticals
  Company Number: BR-PHATHOM PHARMACEUTICALS INC.-2025PHT00737

PATIENT
  Sex: Female

DRUGS (1)
  1. VONOPRAZAN FUMARATE [Suspect]
     Active Substance: VONOPRAZAN FUMARATE
     Indication: Gastrointestinal disorder
     Route: 065

REACTIONS (7)
  - Breast cancer [Unknown]
  - Product blister packaging issue [Unknown]
  - Gastrointestinal disorder [Unknown]
  - Malaise [Unknown]
  - Nervousness [Unknown]
  - Anger [Unknown]
  - Off label use [Unknown]
